FAERS Safety Report 11296211 (Version 1)
Quarter: 2015Q3

REPORT INFORMATION
  Report Type: Spontaneous
  Country: US (occurrence: US)
  Receive Date: 20150722
  Receipt Date: 20150722
  Transmission Date: 20151125
  Serious: Yes (Other)
  Sender: FDA-Public Use
  Company Number: US-ELI_LILLY_AND_COMPANY-US201006000179

PATIENT
  Age: 77 Year
  Sex: Female

DRUGS (8)
  1. BIOTIN [Concomitant]
     Active Substance: BIOTIN
  2. FISH OIL [Concomitant]
     Active Substance: FISH OIL
  3. RESTASIS [Concomitant]
     Active Substance: CYCLOSPORINE
  4. LIMBREL [Concomitant]
     Active Substance: FLAVOCOXID
  5. TOPROL XL [Concomitant]
     Active Substance: METOPROLOL SUCCINATE
  6. CITRACAL [Concomitant]
     Active Substance: CALCIUM CITRATE
  7. VITAMIN D3 [Concomitant]
     Active Substance: CHOLECALCIFEROL
  8. EVISTA [Suspect]
     Active Substance: RALOXIFENE HYDROCHLORIDE
     Indication: OSTEOPOROSIS PROPHYLAXIS
     Dosage: 60 MG, DAILY (1/D)
     Dates: start: 1998, end: 201004

REACTIONS (1)
  - Deep vein thrombosis [Recovered/Resolved]

NARRATIVE: CASE EVENT DATE: 20100505
